FAERS Safety Report 16867721 (Version 1)
Quarter: 2019Q3

REPORT INFORMATION
  Report Type: Spontaneous
  Country: US (occurrence: US)
  Receive Date: 20190930
  Receipt Date: 20190930
  Transmission Date: 20191005
  Serious: Yes (Life-Threatening, Other)
  Sender: FDA-Public Use
  Company Number: US-PFIZER INC-2019404425

PATIENT
  Age: 70 Year
  Sex: Male

DRUGS (6)
  1. LEUPROLIDE [LEUPRORELIN] [Concomitant]
     Indication: DISSEMINATED INTRAVASCULAR COAGULATION
  2. DOCETAXEL. [Suspect]
     Active Substance: DOCETAXEL
     Indication: PROSTATE CANCER METASTATIC
     Dosage: 60 MG/M2, EVERY 3 WEEKS (2 CYCLES)
  3. DOCETAXEL. [Suspect]
     Active Substance: DOCETAXEL
     Indication: DISSEMINATED INTRAVASCULAR COAGULATION
  4. BICALUTAMIDE. [Concomitant]
     Active Substance: BICALUTAMIDE
     Indication: PROSTATE CANCER METASTATIC
     Dosage: 50 MG, DAILY (CYCLIC)
     Route: 058
  5. BICALUTAMIDE. [Concomitant]
     Active Substance: BICALUTAMIDE
     Indication: DISSEMINATED INTRAVASCULAR COAGULATION
  6. LEUPROLIDE [LEUPRORELIN] [Concomitant]
     Indication: PROSTATE CANCER METASTATIC
     Dosage: 7.5 MG, MONTHLY (CYCLIC)
     Route: 058

REACTIONS (1)
  - Thrombocytopenia [Recovering/Resolving]
